FAERS Safety Report 25434434 (Version 1)
Quarter: 2025Q2

REPORT INFORMATION
  Report Type: Spontaneous
  Country: ES (occurrence: ES)
  Receive Date: 20250613
  Receipt Date: 20250613
  Transmission Date: 20250717
  Serious: Yes (Hospitalization, Other)
  Sender: SANOFI AVENTIS
  Company Number: ES-AVENTIS-200410675EU

PATIENT
  Age: 24 Year
  Sex: Female

DRUGS (1)
  1. FUROSEMIDE [Suspect]
     Active Substance: FUROSEMIDE
     Route: 048

REACTIONS (7)
  - Anaphylactic reaction [Recovered/Resolved]
  - Oral pruritus [Recovered/Resolved]
  - Rash maculo-papular [Recovered/Resolved]
  - Angioedema [Recovered/Resolved]
  - Dysphonia [Recovered/Resolved]
  - Dyspnoea [Recovered/Resolved]
  - Hypotension [Recovered/Resolved]
